FAERS Safety Report 9462414 (Version 1)
Quarter: 2013Q3

REPORT INFORMATION
  Report Type: Spontaneous
  Country: US (occurrence: None)
  Receive Date: 20130815
  Receipt Date: 20130815
  Transmission Date: 20140515
  Serious: No
  Sender: FDA-Public Use
  Company Number: None

PATIENT
  Age: 47 Year
  Sex: Male

DRUGS (2)
  1. DEPAKOTE [Suspect]
     Indication: EPILEPSY
     Dates: start: 1998, end: 1999
  2. DILANTIN [Suspect]
     Indication: EPILEPSY
     Dates: start: 1996, end: 1998

REACTIONS (3)
  - Weight increased [None]
  - Rash [None]
  - Somnolence [None]
